FAERS Safety Report 4636446-6 (Version None)
Quarter: 2005Q2

REPORT INFORMATION
  Report Type: 
  Country: None (occurrence: None)
  Receive Date: 20050413
  Receipt Date: 20050413
  Transmission Date: 20051028
  Serious: No
  Sender: FDA-Public Use
  Company Number: None

PATIENT
  Sex: Female
  Weight: 96.9 kg

DRUGS (3)
  1. IRINOTECAN HCL [Suspect]
     Dosage: ON DAY 1 OF WEEKS 1.3.5.7:180 MG/M2 IV OVER 90 ,OM PM DAU 1
     Route: 042
     Dates: start: 20040601
  2. FLUOROURACIL [Suspect]
     Dosage: 400 MG/M2 BOLUS INJECTION POST LV ADMINISTRATION, THEN 2400 MG/M2 CONTINUOUS IV INFUSION OVER 46-48
     Route: 040
  3. LEUCOVORIN CALCIUM [Suspect]
     Dosage: 400 MG /M2 IV OVER 2 HRS , POST IRINOTECAN ADMINISTRATION
     Route: 042

REACTIONS (8)
  - ABDOMINAL PAIN [None]
  - DIARRHOEA [None]
  - GASTROENTERITIS [None]
  - NAUSEA [None]
  - NEUTROPENIA [None]
  - PYREXIA [None]
  - VOMITING [None]
  - WHITE BLOOD CELL COUNT DECREASED [None]
